FAERS Safety Report 21876990 (Version 2)
Quarter: 2023Q1

REPORT INFORMATION
  Report Type: Report from Study
  Country: US (occurrence: US)
  Receive Date: 20230118
  Receipt Date: 20230318
  Transmission Date: 20230418
  Serious: No
  Sender: FDA-Public Use
  Company Number: US-ABBVIE-4242593

PATIENT
  Age: 39 Year
  Sex: Female
  Weight: 61 kg

DRUGS (5)
  1. HUMIRA [Suspect]
     Active Substance: ADALIMUMAB
     Indication: Ankylosing spondylitis
     Route: 058
     Dates: start: 20230109, end: 202302
  2. HUMIRA [Suspect]
     Active Substance: ADALIMUMAB
     Dosage: THE ONSET DATE FOR INJECTION SITE HIVES WAS 2022 AND CESSATION DATE WAS 2022.
     Route: 058
     Dates: start: 202211, end: 20221207
  3. VITAMIN C [Concomitant]
     Active Substance: ASCORBIC ACID
     Indication: Injection site urticaria
  4. IRON [Concomitant]
     Active Substance: IRON
     Indication: Anaemia
  5. VITAMIN D [Concomitant]
     Active Substance: VITAMIN D NOS
     Indication: Injection site urticaria

REACTIONS (9)
  - SARS-CoV-2 test positive [Recovered/Resolved]
  - Cough [Recovered/Resolved]
  - Pain [Recovered/Resolved]
  - Pyrexia [Recovered/Resolved]
  - Influenza like illness [Recovered/Resolved]
  - Ageusia [Recovering/Resolving]
  - Injection site rash [Recovered/Resolved]
  - Chills [Recovered/Resolved]
  - Injection site urticaria [Recovered/Resolved]

NARRATIVE: CASE EVENT DATE: 20221216
